FAERS Safety Report 5813238-3 (Version None)
Quarter: 2008Q3

REPORT INFORMATION
  Report Type: 
  Country: None (occurrence: None)
  Receive Date: 20080717
  Receipt Date: 20080603
  Transmission Date: 20090109
  Serious: No
  Sender: FDA-Public Use
  Company Number: A0730818A

PATIENT
  Age: 72 Year
  Sex: Female

DRUGS (3)
  1. NICORETTE [Suspect]
  2. ATENOLOL [Concomitant]
  3. BENAZEPRIL HYDROCHLORIDE [Concomitant]

REACTIONS (3)
  - INTENTIONAL DRUG MISUSE [None]
  - OROPHARYNGEAL PAIN [None]
  - PHARYNGEAL OEDEMA [None]
